FAERS Safety Report 25403609 (Version 2)
Quarter: 2025Q3

REPORT INFORMATION
  Report Type: Spontaneous
  Country: US (occurrence: US)
  Receive Date: 20250605
  Receipt Date: 20250803
  Transmission Date: 20251021
  Serious: Yes (Other)
  Sender: ALEXION PHARMACEUTICALS
  Company Number: US-AstraZeneca-CH-00883719A

PATIENT
  Age: 85 Year
  Sex: Female
  Weight: 58.966 kg

DRUGS (2)
  1. TEZSPIRE [Suspect]
     Active Substance: TEZEPELUMAB-EKKO
     Indication: Asthma
     Dosage: UNK UNK, Q4W
     Dates: start: 20241106, end: 20250320
  2. TEZSPIRE [Suspect]
     Active Substance: TEZEPELUMAB-EKKO

REACTIONS (1)
  - Pain [Recovered/Resolved with Sequelae]

NARRATIVE: CASE EVENT DATE: 20250401
